FAERS Safety Report 6283815-7 (Version None)
Quarter: 2009Q3

REPORT INFORMATION
  Report Type: 
  Country: None (occurrence: None)
  Receive Date: 20090724
  Receipt Date: 20090716
  Transmission Date: 20100115
  Serious: Yes (Disabling)
  Sender: FDA-Public Use
  Company Number: FR-ASTRAZENECA-2009CG01185

PATIENT
  Age: 50 Year
  Sex: Female
  Weight: 62 kg

DRUGS (2)
  1. CRESTOR [Suspect]
     Indication: HYPERCHOLESTEROLAEMIA
     Route: 048
     Dates: start: 20090315, end: 20090630
  2. PRETERAX [Concomitant]
     Indication: HYPERTENSION
     Route: 048

REACTIONS (3)
  - NEURALGIA [None]
  - TENDONITIS [None]
  - TRISMUS [None]
